FAERS Safety Report 5109290-3 (Version None)
Quarter: 2006Q3

REPORT INFORMATION
  Report Type: 
  Country: None (occurrence: None)
  Receive Date: 20060920
  Receipt Date: 20050627
  Transmission Date: 20061208
  Serious: Yes (Death)
  Sender: FDA-Public Use
  Company Number: US-GLAXOSMITHKLINE-A0564635A

PATIENT
  Age: 38 Year
  Sex: Male
  Weight: 99.1 kg

DRUGS (4)
  1. WELLBUTRIN SR [Suspect]
     Indication: DEPRESSION
     Dosage: 100MG PER DAY
     Route: 048
     Dates: start: 20030613, end: 20030601
  2. KLONOPIN [Concomitant]
     Dosage: .5MG TWICE PER DAY
  3. CELEBREX [Concomitant]
     Dosage: 200MG PER DAY
  4. VOLTAREN [Concomitant]
     Dosage: 50MG TWICE PER DAY

REACTIONS (9)
  - AGGRESSION [None]
  - AGITATION [None]
  - ANGER [None]
  - ANXIETY [None]
  - COMPLETED SUICIDE [None]
  - CRYING [None]
  - EMOTIONAL DISORDER [None]
  - SOCIAL AVOIDANT BEHAVIOUR [None]
  - TREMOR [None]
